FAERS Safety Report 20762316 (Version 1)
Quarter: 2022Q2

REPORT INFORMATION
  Report Type: Spontaneous
  Country: US (occurrence: US)
  Receive Date: 20220428
  Receipt Date: 20220428
  Transmission Date: 20220721
  Serious: Yes (Hospitalization, Other)
  Sender: FDA-Public Use
  Company Number: US-Accord-261735

PATIENT
  Age: 41 Year
  Sex: Male

DRUGS (1)
  1. ESCITALOPRAM [Suspect]
     Active Substance: ESCITALOPRAM OXALATE
     Indication: Product used for unknown indication
     Dosage: UNINTENTIONALLY INJECTED ESCITALOPRAM INTRAVENOUSLY
     Route: 042

REACTIONS (4)
  - Aplastic anaemia [Recovering/Resolving]
  - Incorrect route of product administration [Unknown]
  - Overdose [Unknown]
  - Toxic encephalopathy [Unknown]
